FAERS Safety Report 7037875-6 (Version None)
Quarter: 2010Q4

REPORT INFORMATION
  Report Type: 
  Country: None (occurrence: None)
  Receive Date: 20101011
  Receipt Date: 20101008
  Transmission Date: 20110411
  Serious: Yes (Other)
  Sender: FDA-Public Use
  Company Number: US-JNJFOC-20080304973

PATIENT
  Sex: Female

DRUGS (1)
  1. MOTRIN [Suspect]
     Indication: PAIN
     Dosage: 800 MG 4-5 TIMES A DAY

REACTIONS (6)
  - BACK PAIN [None]
  - DRUG EFFECT DECREASED [None]
  - DRUG INEFFECTIVE [None]
  - HYPERTENSION [None]
  - MOVEMENT DISORDER [None]
  - PANCREATITIS CHRONIC [None]
